FAERS Safety Report 13540278 (Version 1)
Quarter: 2017Q2

REPORT INFORMATION
  Report Type: Report from Study
  Country: US (occurrence: US)
  Receive Date: 20170512
  Receipt Date: 20170512
  Transmission Date: 20170830
  Serious: Yes (Hospitalization)
  Sender: FDA-Public Use
  Company Number: PHHO2017US007827

PATIENT
  Sex: Male
  Weight: 68 kg

DRUGS (4)
  1. GSK1120212 [Suspect]
     Active Substance: TRAMETINIB
     Dosage: 2 MG, QD (58 MG TOTAL ADMINISTERED DOSE)
     Route: 048
     Dates: start: 20170310
  2. DABRAFENIB [Suspect]
     Active Substance: DABRAFENIB
     Indication: MALIGNANT MELANOMA
     Dosage: 150 MG, BID
     Route: 048
     Dates: start: 20170127
  3. GSK1120212 [Suspect]
     Active Substance: TRAMETINIB
     Indication: MALIGNANT MELANOMA
     Dosage: 2 MG, QD
     Route: 048
     Dates: start: 20170127
  4. DABRAFENIB [Suspect]
     Active Substance: DABRAFENIB
     Dosage: 150 MG, BID (7650 MG TOTAL ADMINISTERED DOSE)
     Route: 048
     Dates: start: 20170310

REACTIONS (2)
  - Skin infection [Recovering/Resolving]
  - Seroma [Recovering/Resolving]

NARRATIVE: CASE EVENT DATE: 20170404
